FAERS Safety Report 5758175-8 (Version None)
Quarter: 2008Q2

REPORT INFORMATION
  Report Type: 
  Country: None (occurrence: None)
  Receive Date: 20080530
  Receipt Date: 20080516
  Transmission Date: 20081010
  Serious: Yes (Congenital Anomaly, Other)
  Sender: FDA-Public Use
  Company Number: MPS1-1000063

PATIENT
  Age: 15 Month
  Sex: Female
  Weight: 12.2 kg

DRUGS (1)
  1. ALDURAZYME [Suspect]
     Indication: MUCOPOLYSACCHARIDOSIS I
     Dosage: 100 IU/KG, QW, INTRAVENOUS
     Route: 042
     Dates: start: 20070627, end: 20080508

REACTIONS (2)
  - VENA CAVA THROMBOSIS [None]
  - VENOUS OCCLUSION [None]
